FAERS Safety Report 9376698 (Version 1)
Quarter: 2013Q2

REPORT INFORMATION
  Report Type: Spontaneous
  Country: US (occurrence: None)
  Receive Date: 20130628
  Receipt Date: 20130628
  Transmission Date: 20140414
  Serious: Yes (Other)
  Sender: FDA-Public Use
  Company Number: None

PATIENT
  Age: 24 Year
  Sex: Female
  Weight: 51.71 kg

DRUGS (1)
  1. PARAGARD [Suspect]

REACTIONS (4)
  - Scar [None]
  - Infection [None]
  - Device dislocation [None]
  - Infertility [None]
